FAERS Safety Report 9156543 (Version 1)
Quarter: 2013Q1

REPORT INFORMATION
  Report Type: Spontaneous
  Country: GB (occurrence: None)
  Receive Date: 20130208
  Receipt Date: 20130208
  Transmission Date: 20140127
  Serious: Yes (Hospitalization, Other)
  Sender: FDA-Public Use
  Company Number: 2013P1001604

PATIENT
  Age: 73 Year
  Sex: Female

DRUGS (5)
  1. CIPROFLOXACIN [Suspect]
     Dates: start: 20110215, end: 20110303
  2. OMEPRAZOLE [Suspect]
  3. TAZOCIN [Suspect]
     Dates: start: 20110211, end: 20110215
  4. PIPERACILLIN AND TAZOBACTAM [Suspect]
     Route: 042
     Dates: end: 20110405
  5. VANCOMYCIN [Suspect]

REACTIONS (1)
  - Clostridium difficile infection [None]
